FAERS Safety Report 5500753-5 (Version None)
Quarter: 2007Q4

REPORT INFORMATION
  Report Type: 
  Country: None (occurrence: None)
  Receive Date: 20071022
  Receipt Date: 20070711
  Transmission Date: 20080405
  Serious: Yes (Other)
  Sender: FDA-Public Use
  Company Number: 157865USA

PATIENT
  Age: 16 Year
  Sex: 0

DRUGS (1)
  1. AMIKACIN SULFATE [Suspect]
     Dosage: INTRAVENOUS DRIP
     Route: 041

REACTIONS (2)
  - ANAPHYLACTIC REACTION [None]
  - DYSPNOEA [None]
